FAERS Safety Report 8819790 (Version 1)
Quarter: 2012Q4

REPORT INFORMATION
  Report Type: 
  Country: US (occurrence: US)
  Receive Date: 20121001
  Receipt Date: 20121001
  Transmission Date: 20130627
  Serious: Yes (Other)
  Sender: FDA-Public Use
  Company Number: US-ROCHE-1137146

PATIENT
  Sex: Female

DRUGS (13)
  1. HERCEPTIN [Suspect]
     Indication: BREAST CANCER
     Dosage: loading dose
     Route: 065
     Dates: start: 20090927
  2. HERCEPTIN [Suspect]
     Dosage: maintenance dose
     Route: 065
  3. TAXOTERE [Concomitant]
  4. TAMOXIFEN [Concomitant]
     Route: 065
  5. COUMADIN [Concomitant]
  6. PREVACID [Concomitant]
  7. EPO [Concomitant]
     Route: 065
  8. EPO [Concomitant]
     Dosage: increased
     Route: 065
  9. DESYREL [Concomitant]
     Route: 065
  10. ALDACTONE [Concomitant]
  11. PRINIVIL [Concomitant]
  12. AROMASIN [Concomitant]
     Route: 065
  13. AREDIA [Concomitant]

REACTIONS (16)
  - Cardiac failure congestive [Unknown]
  - Blood urine present [Unknown]
  - Hot flush [Unknown]
  - Herpes zoster [Unknown]
  - Pyrexia [Unknown]
  - Myalgia [Unknown]
  - Nasal congestion [Unknown]
  - Oedema [Unknown]
  - Fatigue [Unknown]
  - Dysphonia [Unknown]
  - Poor quality sleep [Unknown]
  - Diarrhoea [Unknown]
  - Nausea [Unknown]
  - Nasopharyngitis [Unknown]
  - Cough [Unknown]
  - Pleural effusion [Unknown]
